FAERS Safety Report 5360349-5 (Version None)
Quarter: 2007Q2

REPORT INFORMATION
  Report Type: 
  Country: None (occurrence: None)
  Receive Date: 20070614
  Receipt Date: 20070604
  Transmission Date: 20071010
  Serious: Yes (Other)
  Sender: FDA-Public Use
  Company Number: 013953

PATIENT
  Age: 31 Year
  Sex: Female

DRUGS (7)
  1. CLARAVIS [Suspect]
     Dosage: SEE IMAGE
     Route: 048
     Dates: start: 20070121, end: 20070219
  2. CLARAVIS [Suspect]
     Dosage: SEE IMAGE
     Route: 048
     Dates: start: 20070220, end: 20070401
  3. FLONASE [Concomitant]
  4. KLONOPIN [Concomitant]
  5. LEVAQUIN [Concomitant]
  6. LEXAPRO [Concomitant]
  7. SEROQUEL [Concomitant]

REACTIONS (3)
  - DEAFNESS [None]
  - MENINGITIS [None]
  - SINUSITIS [None]
